FAERS Safety Report 12899713 (Version 6)
Quarter: 2018Q1

REPORT INFORMATION
  Report Type: Spontaneous
  Country: US (occurrence: US)
  Receive Date: 20161101
  Receipt Date: 20180212
  Transmission Date: 20180508
  Serious: Yes (Hospitalization, Other)
  Sender: FDA-Public Use
  Company Number: US-PFIZER INC-2016506453

PATIENT
  Age: 76 Year
  Sex: Male
  Weight: 96 kg

DRUGS (2)
  1. REVATIO [Suspect]
     Active Substance: SILDENAFIL CITRATE
     Indication: PULMONARY HYPERTENSION
     Dosage: 40 MG, 3X/DAY/20MG TABLET, 2 TABLETS 3 TIMES A DAY
     Dates: start: 201503
  2. REVATIO [Suspect]
     Active Substance: SILDENAFIL CITRATE
     Dosage: 40 MG, 3X/DAY(TWO TABLETS BY MOUTH THREE TIMES PER DAY)
     Route: 048
     Dates: start: 2016

REACTIONS (9)
  - Sneezing [Recovering/Resolving]
  - Product use issue [Recovered/Resolved]
  - Rhinorrhoea [Recovering/Resolving]
  - Pulmonary oedema [Recovering/Resolving]
  - Sinus disorder [Recovering/Resolving]
  - Myocardial infarction [Recovered/Resolved]
  - Pneumonia [Unknown]
  - Malaise [Not Recovered/Not Resolved]
  - Sinusitis [Unknown]

NARRATIVE: CASE EVENT DATE: 201503
